FAERS Safety Report 6880321-3 (Version None)
Quarter: 2010Q3

REPORT INFORMATION
  Report Type: 
  Country: None (occurrence: None)
  Receive Date: 20100728
  Receipt Date: 20100719
  Transmission Date: 20110219
  Serious: Yes (Hospitalization)
  Sender: FDA-Public Use
  Company Number: US-JNJFOC-20100706779

PATIENT
  Sex: Male
  Weight: 79.38 kg

DRUGS (7)
  1. REMICADE [Suspect]
     Indication: CROHN'S DISEASE
     Dosage: HAD 10 INFUSIONS PRIOR TO TREAT
     Route: 042
  2. REMICADE [Suspect]
     Dosage: 33 INFUSIONS
     Route: 042
  3. REMICADE [Suspect]
     Dosage: 7 INFUSIONS
     Route: 042
  4. ANTIHISTAMINES [Concomitant]
     Indication: PREMEDICATION
  5. ACETAMINOPHEN [Concomitant]
     Indication: PREMEDICATION
  6. HUMIRA [Concomitant]
  7. QUESTRAN LIGHT [Concomitant]

REACTIONS (1)
  - NEPHROLITHIASIS [None]
